FAERS Safety Report 9219559 (Version 4)
Quarter: 2013Q3

REPORT INFORMATION
  Report Type: Report from Study
  Country: CA (occurrence: CA)
  Receive Date: 20130409
  Receipt Date: 20130723
  Transmission Date: 20140515
  Serious: Yes (Hospitalization, Other)
  Sender: FDA-Public Use
  Company Number: CA-ROCHE-1190946

PATIENT
  Age: 71 Year
  Sex: Male
  Weight: 90 kg

DRUGS (12)
  1. ACTEMRA [Suspect]
     Indication: RHEUMATOID ARTHRITIS
     Route: 042
     Dates: start: 20130108, end: 20130625
  2. RAMIPRIL [Suspect]
     Indication: HYPERTENSION
     Route: 048
  3. PREDNISONE [Concomitant]
     Route: 048
  4. TYLENOL ARTHRITIS [Concomitant]
  5. FUROSEMIDE [Concomitant]
     Route: 048
  6. CARBAMAZEPINE [Concomitant]
  7. LORAZEPAM [Concomitant]
     Dosage: AS REQUIRED
     Route: 065
  8. ASA [Concomitant]
     Route: 048
  9. SYMBICORT [Concomitant]
  10. KEPPRA [Concomitant]
     Route: 048
  11. ALEVE [Concomitant]
     Route: 065
  12. LEVETIRACETAM [Concomitant]

REACTIONS (7)
  - Drug ineffective [Unknown]
  - Gout [Recovering/Resolving]
  - Abdominal pain upper [Recovered/Resolved]
  - Joint swelling [Not Recovered/Not Resolved]
  - Cardiovascular disorder [Recovered/Resolved]
  - Ulcer haemorrhage [Unknown]
  - Hypotension [Unknown]
